FAERS Safety Report 10651417 (Version 1)
Quarter: 2014Q4

REPORT INFORMATION
  Report Type: Report from Study
  Country: CA (occurrence: CA)
  Receive Date: 20141215
  Receipt Date: 20141215
  Transmission Date: 20150529
  Serious: Yes (Other)
  Sender: FDA-Public Use
  Company Number: CA-JNJFOC-20141206053

PATIENT
  Age: 29 Year
  Sex: Female
  Weight: 48.9 kg

DRUGS (1)
  1. REMICADE [Suspect]
     Active Substance: INFLIXIMAB
     Indication: CROHN^S DISEASE
     Route: 042
     Dates: start: 20140806

REACTIONS (4)
  - Abortion spontaneous complete [Recovered/Resolved]
  - Exposure during pregnancy [Recovered/Resolved]
  - Gastrooesophageal reflux disease [Unknown]
  - Urinary tract infection [Unknown]

NARRATIVE: CASE EVENT DATE: 20141028
